FAERS Safety Report 14301348 (Version 2)
Quarter: 2017Q4

REPORT INFORMATION
  Report Type: Report from Study
  Country: IT (occurrence: IT)
  Receive Date: 20171219
  Receipt Date: 20171226
  Transmission Date: 20180321
  Serious: Yes (Congenital Anomaly, Other)
  Sender: FDA-Public Use
  Company Number: IT-AMGEN-ITANI2017096715

PATIENT
  Age: 66 Year
  Sex: Male
  Weight: 69 kg

DRUGS (7)
  1. FLUOROURACIL. [Suspect]
     Active Substance: FLUOROURACIL
     Indication: COLON CANCER
     Dosage: 1700 MG, CYCLICAL
     Route: 065
     Dates: start: 20161123, end: 20170221
  2. FOLFOX [Suspect]
     Active Substance: FLUOROURACIL\LEUCOVORIN CALCIUM\OXALIPLATIN
     Dosage: 1700 MG, Q2WK
     Route: 042
     Dates: start: 20170102
  3. CALCIUM FOLINATE [Suspect]
     Active Substance: LEUCOVORIN CALCIUM
     Indication: COLON CANCER
     Dosage: 1700 MG, CYCLICAL
     Route: 065
     Dates: start: 20161123, end: 20170221
  4. PANITUMUMAB [Suspect]
     Active Substance: PANITUMUMAB
     Indication: COLON CANCER
     Dosage: 450 MG, Q2WK
     Route: 042
     Dates: start: 20161128
  5. FOLFOX [Suspect]
     Active Substance: FLUOROURACIL\LEUCOVORIN CALCIUM\OXALIPLATIN
     Indication: COLON CANCER METASTATIC
     Dosage: 1700 MG, Q2WK
     Route: 042
     Dates: start: 20161123
  6. OXALIPLATIN. [Suspect]
     Active Substance: OXALIPLATIN
     Indication: COLON CANCER
     Dosage: 1700 MG, CYCLICAL
     Route: 065
     Dates: start: 20161122, end: 20170221
  7. PANITUMUMAB [Suspect]
     Active Substance: PANITUMUMAB
     Indication: COLON CANCER METASTATIC
     Dosage: 300 MG, Q2WK
     Route: 042
     Dates: start: 20170102

REACTIONS (17)
  - Neuralgia [Recovered/Resolved]
  - Scab [Recovered/Resolved]
  - Astringent therapy [Recovered/Resolved]
  - Skin exfoliation [Recovered/Resolved]
  - Paronychia [Recovered/Resolved]
  - Supraventricular tachycardia [Recovered/Resolved]
  - Pyrexia [Recovered/Resolved]
  - Mucocutaneous rash [Unknown]
  - Rash [Recovered/Resolved]
  - Dermatitis acneiform [Recovered/Resolved]
  - Dry skin [Recovered/Resolved]
  - Xerosis [Recovered/Resolved]
  - Skin toxicity [Recovered/Resolved]
  - Nausea [Recovered/Resolved]
  - Erythema multiforme [Recovered/Resolved]
  - Erythema [Recovered/Resolved]
  - Diarrhoea [Unknown]

NARRATIVE: CASE EVENT DATE: 20170102
